FAERS Safety Report 9918207 (Version 3)
Quarter: 2017Q1

REPORT INFORMATION
  Report Type: Report from Study
  Country: US (occurrence: US)
  Receive Date: 20140223
  Receipt Date: 20170127
  Transmission Date: 20170429
  Serious: Yes (Other)
  Sender: FDA-Public Use
  Company Number: US-ROCHE-1315252

PATIENT
  Sex: Female
  Weight: 79.45 kg

DRUGS (9)
  1. QUIXIN [Concomitant]
     Active Substance: LEVOFLOXACIN
     Route: 065
     Dates: start: 20130411
  2. HYDROCHLOROTHIAZIDE. [Concomitant]
     Active Substance: HYDROCHLOROTHIAZIDE
     Route: 065
     Dates: start: 20130213
  3. LUCENTIS [Suspect]
     Active Substance: RANIBIZUMAB
     Indication: NEOVASCULAR AGE-RELATED MACULAR DEGENERATION
     Dosage: 3 MONTHS THEN QUARTERLY
     Route: 050
     Dates: start: 20080417
  4. VIGAMOX [Concomitant]
     Active Substance: MOXIFLOXACIN HYDROCHLORIDE
  5. AVASTIN [Suspect]
     Active Substance: BEVACIZUMAB
     Indication: PRODUCT USED FOR UNKNOWN INDICATION
     Route: 042
     Dates: start: 20071101
  6. LISINOPRIL. [Concomitant]
     Active Substance: LISINOPRIL
     Route: 065
     Dates: start: 20160120
  7. MYDRIACYL [Concomitant]
     Active Substance: TROPICAMIDE
     Indication: MYDRIASIS
     Dosage: 1 PERCENT DROPS
     Route: 065
     Dates: start: 20130411
  8. COD LIVER OIL [Concomitant]
     Active Substance: COD LIVER OIL
  9. LUCENTIS [Suspect]
     Active Substance: RANIBIZUMAB
     Dosage: LEFT EYE
     Route: 050
     Dates: start: 2012

REACTIONS (9)
  - Visual acuity reduced [Not Recovered/Not Resolved]
  - Vitreous floaters [Unknown]
  - Eye haemorrhage [Unknown]
  - Vision blurred [Unknown]
  - Condition aggravated [Unknown]
  - Blindness [Not Recovered/Not Resolved]
  - Hypertension [Not Recovered/Not Resolved]
  - Drug ineffective [Unknown]
  - Cystoid macular oedema [Unknown]
